FAERS Safety Report 6385995-1 (Version None)
Quarter: 2009Q4

REPORT INFORMATION
  Report Type: 
  Country: None (occurrence: None)
  Receive Date: 20091002
  Receipt Date: 20090803
  Transmission Date: 20100525
  Serious: No
  Sender: FDA-Public Use
  Company Number: US-ASTRAZENECA-2008UW25439

PATIENT
  Sex: Female

DRUGS (2)
  1. ARIMIDEX [Suspect]
     Indication: BREAST CANCER FEMALE
     Route: 048
     Dates: start: 20081001
  2. CRESTOR [Concomitant]
     Route: 048

REACTIONS (3)
  - HEADACHE [None]
  - ILL-DEFINED DISORDER [None]
  - PAIN IN EXTREMITY [None]
